FAERS Safety Report 8001085 (Version 2)
Quarter: 2014Q2

REPORT INFORMATION
  Report Type: Spontaneous
  Country: US (occurrence: US)
  Receive Date: 20110621
  Receipt Date: 20140422
  Transmission Date: 20141212
  Serious: No
  Sender: FDA-Public Use
  Company Number: US-ASTRAZENECA-2011SE05350

PATIENT
  Age: 59 Year
  Sex: Female

DRUGS (5)
  1. RHINOCORT AQUA [Suspect]
     Indication: MIGRAINE
     Route: 045
  2. RHINOCORT AQUA [Suspect]
     Indication: HYPERSENSITIVITY
     Route: 045
  3. EFFEXOR [Concomitant]
  4. THYME [Concomitant]
  5. IMITREX [Concomitant]

REACTIONS (10)
  - Ear pain [Unknown]
  - Headache [Unknown]
  - Tinnitus [Unknown]
  - Therapeutic response changed [Unknown]
  - Migraine [Unknown]
  - Malaise [Unknown]
  - Menopause [Unknown]
  - Nasal discomfort [Unknown]
  - Drug dose omission [Unknown]
  - Circumstance or information capable of leading to medication error [Unknown]
